FAERS Safety Report 7912874-8 (Version None)
Quarter: 2011Q4

REPORT INFORMATION
  Report Type: 
  Country: None (occurrence: None)
  Receive Date: 20111114
  Receipt Date: 20111017
  Transmission Date: 20120403
  Serious: Yes (Other)
  Sender: FDA-Public Use
  Company Number: GB-SANOFI-AVENTIS-2011SA060437

PATIENT
  Age: 49 Year
  Sex: Male
  Weight: 85.4 kg

DRUGS (8)
  1. AMOXICILLIN AND CLAVULANATE POTASSIUM [Concomitant]
     Dates: start: 20110616, end: 20110623
  2. DAKTACORT [Concomitant]
     Dates: start: 20110616, end: 20110626
  3. INSULIN DETEMIR [Suspect]
  4. METFORMIN [Concomitant]
     Dates: start: 20110621, end: 20110719
  5. GLICLAZIDE [Concomitant]
     Dates: start: 20110620
  6. SIMVASTATIN [Concomitant]
     Dates: start: 20110513, end: 20110610
  7. CETIRIZINE HCL [Concomitant]
     Dates: start: 20110616, end: 20110627
  8. LANTUS [Suspect]
     Dates: start: 20110328, end: 20110725

REACTIONS (4)
  - KOEBNER PHENOMENON [None]
  - INJECTION SITE REACTION [None]
  - ANGIOEDEMA [None]
  - URTICARIA [None]
